FAERS Safety Report 25026851 (Version 1)
Quarter: 2025Q1

REPORT INFORMATION
  Report Type: Spontaneous
  Country: US (occurrence: US)
  Receive Date: 20250301
  Receipt Date: 20250301
  Transmission Date: 20250409
  Serious: No
  Sender: SANOFI AVENTIS
  Company Number: US-SA-2025SA055193

PATIENT
  Age: 77 Year
  Sex: Female

DRUGS (22)
  1. DUPIXENT [Suspect]
     Active Substance: DUPILUMAB
     Indication: Nasal polyps
     Dosage: 300 MG, QOW
     Route: 058
     Dates: start: 20250129
  2. Allergy Relief [Concomitant]
  3. ASPIRIN [Concomitant]
     Active Substance: ASPIRIN
  4. BACTRIM DS [Concomitant]
     Active Substance: SULFAMETHOXAZOLE\TRIMETHOPRIM
  5. CLARITHROMYCIN [Concomitant]
     Active Substance: CLARITHROMYCIN
  6. FAMOTIDINE [Concomitant]
     Active Substance: FAMOTIDINE
  7. FASENRA [Concomitant]
     Active Substance: BENRALIZUMAB
  8. FLOVENT [Concomitant]
     Active Substance: FLUTICASONE PROPIONATE
  9. GLATIRAMER [Concomitant]
     Active Substance: GLATIRAMER
  10. IBUPROFEN [Concomitant]
     Active Substance: IBUPROFEN
  11. IRON [Concomitant]
     Active Substance: IRON
  12. MELATONIN [Concomitant]
     Active Substance: MELATONIN
  13. MOMETASONE [Concomitant]
     Active Substance: MOMETASONE
  14. MONTELUKAST [Concomitant]
     Active Substance: MONTELUKAST
  15. PREDNISONE [Concomitant]
     Active Substance: PREDNISONE
  16. PREDNISONE [Concomitant]
     Active Substance: PREDNISONE
  17. MINERALS\VITAMINS [Concomitant]
     Active Substance: MINERALS\VITAMINS
  18. PROBIOTICS NOS [Concomitant]
     Active Substance: PROBIOTICS NOS
  19. SYNTHROID [Concomitant]
     Active Substance: LEVOTHYROXINE SODIUM
  20. VITAMIN B12 [Concomitant]
     Active Substance: CYANOCOBALAMIN
  21. VITAMIN D3 [Concomitant]
     Active Substance: CHOLECALCIFEROL
  22. ZYFLO [Concomitant]
     Active Substance: ZILEUTON

REACTIONS (1)
  - Dizziness [Unknown]
